FAERS Safety Report 14020154 (Version 2)
Quarter: 2018Q2

REPORT INFORMATION
  Report Type: Report from Study
  Country: US (occurrence: US)
  Receive Date: 20170928
  Receipt Date: 20180618
  Transmission Date: 20180711
  Serious: Yes (Other)
  Sender: FDA-Public Use
  Company Number: US-JNJFOC-20170927021

PATIENT

DRUGS (9)
  1. ACETAMINOPHEN. [Concomitant]
     Active Substance: ACETAMINOPHEN
     Route: 065
  2. NALOXONE [Suspect]
     Active Substance: NALOXONE
     Indication: PRODUCT USED FOR UNKNOWN INDICATION
     Route: 030
  3. SIMETHICONE (DIMETHICONE) [Concomitant]
     Active Substance: DIMETHICONE
     Route: 065
  4. TRAMADOL. [Suspect]
     Active Substance: TRAMADOL
     Indication: PROPHYLAXIS
     Route: 048
  5. MORPHINE [Suspect]
     Active Substance: MORPHINE
     Indication: PRODUCT USED FOR UNKNOWN INDICATION
     Route: 058
  6. DIPHENHYDRAMINE HYDROCHLORIDE. [Concomitant]
     Active Substance: DIPHENHYDRAMINE HYDROCHLORIDE
     Route: 065
  7. LOPERAMIDE HYDROCHLORIDE. [Concomitant]
     Active Substance: LOPERAMIDE HYDROCHLORIDE
     Route: 065
  8. IBUPROFEN. [Concomitant]
     Active Substance: IBUPROFEN
     Route: 065
  9. HYDROXYZINE HYDROCHLORIDE. [Concomitant]
     Active Substance: HYDROXYZINE HYDROCHLORIDE
     Route: 065

REACTIONS (40)
  - Dyspepsia [Unknown]
  - Lacrimation increased [Unknown]
  - Flatulence [Unknown]
  - Muscle twitching [Unknown]
  - Haematochezia [Unknown]
  - Piloerection [Unknown]
  - Dizziness [Unknown]
  - Hyperhidrosis [Unknown]
  - Withdrawal syndrome [Unknown]
  - Abdominal pain [Unknown]
  - Rhinorrhoea [Unknown]
  - Headache [Unknown]
  - Nausea [Unknown]
  - Tremor [Unknown]
  - Skin discolouration [Unknown]
  - Rash [Unknown]
  - Hot flush [Unknown]
  - Myalgia [Unknown]
  - Anxiety [Unknown]
  - Vision blurred [Unknown]
  - Dry mouth [Unknown]
  - Product use in unapproved indication [Unknown]
  - Tachycardia [Unknown]
  - Fatigue [Unknown]
  - Irritability [Unknown]
  - Diarrhoea [Unknown]
  - Yawning [Unknown]
  - Malaise [Unknown]
  - Constipation [Unknown]
  - Lethargy [Unknown]
  - Paraesthesia [Unknown]
  - Vomiting [Unknown]
  - Ear infection [Unknown]
  - Somnolence [Unknown]
  - Chills [Unknown]
  - Agitation [Unknown]
  - Decreased appetite [Unknown]
  - Insomnia [Unknown]
  - Restlessness [Unknown]
  - Off label use [Unknown]
